FAERS Safety Report 10262657 (Version 2)
Quarter: 2014Q2

REPORT INFORMATION
  Report Type: Report from Study
  Country: US (occurrence: US)
  Receive Date: 20140626
  Receipt Date: 20140626
  Transmission Date: 20141212
  Serious: Yes (Death)
  Sender: FDA-Public Use
  Company Number: US-MYLANLABS-2013S1010415

PATIENT
  Age: 65 Year
  Sex: Male
  Weight: 82.1 kg

DRUGS (6)
  1. CLOZAPINE TABLETS [Suspect]
     Indication: PSYCHOTIC DISORDER
     Route: 048
  2. LEXAPRO [Concomitant]
     Route: 048
  3. MIDODRINE [Concomitant]
     Dosage: USING 5MG TABLET
     Route: 048
  4. CARBIDOPA + LEVODOPA [Concomitant]
  5. FLUDROCORTISONE [Concomitant]
  6. ASPIRIN [Concomitant]

REACTIONS (2)
  - Cardiac disorder [Fatal]
  - Fall [Fatal]
